FAERS Safety Report 18890111 (Version 3)
Quarter: 2021Q1

REPORT INFORMATION
  Report Type: Spontaneous
  Country: US (occurrence: US)
  Receive Date: 20210214
  Receipt Date: 20210324
  Transmission Date: 20210420
  Serious: Yes (Hospitalization, Other)
  Sender: FDA-Public Use
  Company Number: US-SA-2021SA046028

PATIENT
  Age: 43 Year
  Sex: Female

DRUGS (1)
  1. AUBAGIO [Suspect]
     Active Substance: TERIFLUNOMIDE
     Indication: MULTIPLE SCLEROSIS
     Dosage: 14 MG, QD
     Route: 048
     Dates: start: 20201110

REACTIONS (9)
  - Gait inability [Unknown]
  - Illness [Unknown]
  - Multiple sclerosis [Unknown]
  - Skin ulcer [Unknown]
  - Pneumonia [Unknown]
  - Ear infection [Unknown]
  - Furuncle [Unknown]
  - Skin exfoliation [Unknown]
  - Mental impairment [Unknown]
